FAERS Safety Report 13649914 (Version 1)
Quarter: 2017Q2

REPORT INFORMATION
  Report Type: Spontaneous
  Country: US (occurrence: US)
  Receive Date: 20170613
  Receipt Date: 20170613
  Transmission Date: 20170830
  Serious: Yes (Hospitalization, Disabling, Other)
  Sender: FDA-Public Use
  Company Number: None

PATIENT
  Age: 29 Year
  Sex: Female
  Weight: 55.8 kg

DRUGS (2)
  1. ASTHMA INHALERS [Concomitant]
  2. CIPROFLAXACIN 400 MG [Suspect]
     Active Substance: CIPROFLOXACIN
     Indication: MALAISE
     Dosage: ?          QUANTITY:7 TABLET(S);?
     Route: 048
     Dates: start: 20170607, end: 20170610

REACTIONS (4)
  - Tendonitis [None]
  - Gait disturbance [None]
  - Nerve injury [None]
  - Loss of personal independence in daily activities [None]

NARRATIVE: CASE EVENT DATE: 20170610
